FAERS Safety Report 5588923-1 (Version None)
Quarter: 2007Q4

REPORT INFORMATION
  Report Type: 
  Country: None (occurrence: None)
  Receive Date: 20071212
  Receipt Date: 20070913
  Transmission Date: 20080405
  Serious: No
  Sender: FDA-Public Use
  Company Number: 2007RL000407

PATIENT
  Age: 48 Year
  Sex: Male

DRUGS (1)
  1. LOVAZA [Suspect]
     Indication: DRUG USE FOR UNKNOWN INDICATION
     Dosage: 2 GM;BID;PO
     Route: 048
     Dates: start: 20070101

REACTIONS (2)
  - DIARRHOEA [None]
  - TREATMENT NONCOMPLIANCE [None]
